FAERS Safety Report 8431623-0 (Version None)
Quarter: 2012Q2

REPORT INFORMATION
  Report Type: 
  Country: None (occurrence: None)
  Receive Date: 20120613
  Receipt Date: 20120606
  Transmission Date: 20120825
  Serious: Yes (Hospitalization, Other)
  Sender: FDA-Public Use
  Company Number: BR-SANOFI-AVENTIS-2012SA040995

PATIENT
  Age: 11 Year
  Sex: Male

DRUGS (3)
  1. LANTUS [Suspect]
     Route: 058
  2. LANTUS [Suspect]
     Dosage: 20 IU IN THE MORNING AND 10 IU IN NIGHT
     Route: 058
     Dates: start: 20090101
  3. LANTUS [Suspect]
     Route: 058
     Dates: start: 20120101, end: 20120501

REACTIONS (12)
  - DEHYDRATION [None]
  - POLLAKIURIA [None]
  - AGITATION [None]
  - THYROID DISORDER [None]
  - EYES SUNKEN [None]
  - THIRST [None]
  - PAROSMIA [None]
  - NERVOUSNESS [None]
  - VOMITING [None]
  - HYPERGLYCAEMIA [None]
  - DRUG ADMINISTRATION ERROR [None]
  - WEIGHT DECREASED [None]
